FAERS Safety Report 22017184 (Version 1)
Quarter: 2023Q1

REPORT INFORMATION
  Report Type: Spontaneous
  Country: CH (occurrence: CH)
  Receive Date: 20230221
  Receipt Date: 20230221
  Transmission Date: 20230418
  Serious: Yes (Other)
  Sender: FDA-Public Use
  Company Number: CH-VERTEX PHARMACEUTICALS-2023-002519

PATIENT
  Age: 23 Year
  Sex: Male

DRUGS (1)
  1. ORKAMBI [Suspect]
     Active Substance: IVACAFTOR\LUMACAFTOR
     Indication: Cystic fibrosis
     Dosage: UNK
     Route: 048
     Dates: start: 202001

REACTIONS (3)
  - Upper gastrointestinal haemorrhage [Unknown]
  - Ascites [Unknown]
  - Splenomegaly [Unknown]

NARRATIVE: CASE EVENT DATE: 20200101
